FAERS Safety Report 11864262 (Version 3)
Quarter: 2016Q1

REPORT INFORMATION
  Report Type: Spontaneous
  Country: JP (occurrence: JP)
  Receive Date: 20151223
  Receipt Date: 20160128
  Transmission Date: 20160526
  Serious: Yes (Other)
  Sender: FDA-Public Use
  Company Number: JP-PFIZER INC-2015456081

PATIENT
  Age: 5 Year
  Weight: 17 kg

DRUGS (1)
  1. CORTRIL [Suspect]
     Active Substance: HYDROCORTISONE
     Indication: HYPOPITUITARISM
     Dosage: 0.5 TABLET THREE TIMES DAILY
     Route: 048

REACTIONS (2)
  - Renal failure [Unknown]
  - Nephrogenic diabetes insipidus [Unknown]
